FAERS Safety Report 20125574 (Version 2)
Quarter: 2021Q4

REPORT INFORMATION
  Report Type: 
  Country: GB (occurrence: GB)
  Receive Date: 20211129
  Receipt Date: 20211214
  Transmission Date: 20220303
  Serious: Yes (Death, Other)
  Sender: FDA-Public Use
  Company Number: GB-SYNTHON BV-IN51PV21_61552

PATIENT
  Age: 88 Year
  Sex: Male
  Weight: 92 kg

DRUGS (13)
  1. TAMSULOSIN [Suspect]
     Active Substance: TAMSULOSIN
     Indication: Product used for unknown indication
     Dosage: 1 DOSAGE FORM, QD
     Dates: start: 20210219
  2. CALCIUM CARBONATE\SODIUM ALGINATE\SODIUM BICARBONATE [Suspect]
     Active Substance: CALCIUM CARBONATE\SODIUM ALGINATE\SODIUM BICARBONATE
     Indication: Product used for unknown indication
     Dosage: 10 ML, QID;
     Dates: start: 20210910
  3. CHOLECALCIFEROL [Suspect]
     Active Substance: CHOLECALCIFEROL
     Indication: Product used for unknown indication
     Dosage: UNK, TO BE TAKEN EACH MORNING; ;
     Dates: start: 20210122
  4. DABIGATRAN ETEXILATE [Suspect]
     Active Substance: DABIGATRAN ETEXILATE
     Indication: Product used for unknown indication
     Dosage: 1 DF, BID, TO THIN BLOOD
     Dates: start: 20211015
  5. DILTIAZEM [Suspect]
     Active Substance: DILTIAZEM
     Indication: Product used for unknown indication
     Dosage: 1 DOSAGE FORM, QD (1 DF, DAILY, IN THE MORNING)
     Dates: start: 20201109
  6. ISOPROPYL MYRISTATE\PARAFFIN [Suspect]
     Active Substance: ISOPROPYL MYRISTATE\PARAFFIN
     Indication: Product used for unknown indication
     Dosage: 1 DF, DAILY, APPLY;
     Dates: start: 20200326
  7. FLUOROURACIL [Suspect]
     Active Substance: FLUOROURACIL
     Indication: Product used for unknown indication
     Dosage: UNK,APPLY ONCE TO TWICE DAILY FOR 3-4 WEEKS; ;
     Dates: start: 20211001
  8. NITROGLYCERIN [Suspect]
     Active Substance: NITROGLYCERIN
     Indication: Product used for unknown indication
     Dosage: 1 DOSAGE FORM, PUFF
     Dates: start: 20200326
  9. HYDROCORTISONE [Suspect]
     Active Substance: HYDROCORTISONE
     Indication: Product used for unknown indication
     Dosage: 1 DF, BID, APPLY SPARINGLY TO THE AFFECTED AREA
     Dates: start: 20211001
  10. OMEPRAZOLE [Suspect]
     Active Substance: OMEPRAZOLE
     Indication: Product used for unknown indication
     Dosage: 350 MILLIGRAMS
     Route: 048
     Dates: start: 20210910, end: 20211015
  11. ACETAMINOPHEN [Suspect]
     Active Substance: ACETAMINOPHEN
     Indication: Product used for unknown indication
     Dosage: 2 DF, QID
     Dates: start: 20210122
  12. RAMIPRIL [Suspect]
     Active Substance: RAMIPRIL
     Indication: Product used for unknown indication
     Dosage: 1 DF, DAILY
     Dates: start: 20201015
  13. ACETAMINOPHEN\BENZALKONIUM\DICHLORALPHENAZONE\DIMETHICONE\HYDROCORTISO [Suspect]
     Active Substance: ACETAMINOPHEN\BENZALKONIUM\DICHLORALPHENAZONE\DIMETHICONE\HYDROCORTISONE\ISOMETHEPTENE\NYSTATIN
     Indication: Skin lesion
     Dosage: 1 DF, TID, APPLY UNTIL THE LESIONS HAVE HEALED
     Dates: start: 20210910, end: 20210924

REACTIONS (1)
  - Erythema multiforme [Fatal]

NARRATIVE: CASE EVENT DATE: 20211015
